FAERS Safety Report 4349814-7 (Version None)
Quarter: 2004Q2

REPORT INFORMATION
  Report Type: 
  Country: None (occurrence: None)
  Receive Date: 20040426
  Receipt Date: 20040413
  Transmission Date: 20050107
  Serious: Yes (Hospitalization, Other)
  Sender: FDA-Public Use
  Company Number: 2004012533

PATIENT
  Sex: Male
  Weight: 65.7716 kg

DRUGS (5)
  1. DILANTIN [Suspect]
     Indication: CONVULSION
     Dates: end: 20030801
  2. NEURONTIN [Suspect]
     Indication: CONVULSION
     Dosage: 2400 MG TID
     Dates: end: 20030801
  3. PHENOBARBITAL TAB [Concomitant]
  4. VALPROATE SODIUM [Concomitant]
  5. CLONAZEPAM [Concomitant]

REACTIONS (4)
  - CONVULSION [None]
  - DYSKINESIA [None]
  - HOT FLUSH [None]
  - MUSCLE TWITCHING [None]
